FAERS Safety Report 12387786 (Version 2)
Quarter: 2016Q2

REPORT INFORMATION
  Report Type: Spontaneous
  Country: US (occurrence: US)
  Receive Date: 20160520
  Receipt Date: 20160615
  Transmission Date: 20160815
  Serious: Yes (Other)
  Sender: FDA-Public Use
  Company Number: US-009507513-1605USA009193

PATIENT
  Age: 40 Year
  Sex: Female

DRUGS (1)
  1. BELSOMRA [Suspect]
     Active Substance: SUVOREXANT
     Indication: INSOMNIA
     Dosage: 10 MG, UNK
     Route: 048
     Dates: start: 20160401, end: 2016

REACTIONS (2)
  - Movement disorder [Recovered/Resolved]
  - Paralysis [Recovered/Resolved]

NARRATIVE: CASE EVENT DATE: 20160401
